FAERS Safety Report 7484276-2 (Version None)
Quarter: 2011Q2

REPORT INFORMATION
  Report Type: 
  Country: None (occurrence: None)
  Receive Date: 20110517
  Receipt Date: 20101020
  Transmission Date: 20111010
  Serious: No
  Sender: FDA-Public Use
  Company Number: US-BAYER-201040213NA

PATIENT
  Age: 3 Year
  Sex: Female

DRUGS (1)
  1. BEYAZ [Suspect]
     Dosage: UNK, ONCE
     Dates: start: 20101020, end: 20101020

REACTIONS (1)
  - NO ADVERSE EVENT [None]
